FAERS Safety Report 9869688 (Version 1)
Quarter: 2014Q1

REPORT INFORMATION
  Report Type: Spontaneous
  Country: US (occurrence: None)
  Receive Date: 20140203
  Receipt Date: 20140203
  Transmission Date: 20141002
  Serious: Yes (Hospitalization)
  Sender: FDA-Public Use
  Company Number: None

PATIENT
  Age: 62 Year
  Sex: Male
  Weight: 119 kg

DRUGS (2)
  1. CISPLATIN [Suspect]
  2. PACLITAXEL (TAXOL) [Suspect]

REACTIONS (5)
  - Dehydration [None]
  - Diarrhoea [None]
  - Atrial flutter [None]
  - Decreased appetite [None]
  - Dizziness [None]
